FAERS Safety Report 6340571-1 (Version None)
Quarter: 2009Q3

REPORT INFORMATION
  Report Type: 
  Country: None (occurrence: None)
  Receive Date: 20090902
  Receipt Date: 20090827
  Transmission Date: 20100115
  Serious: Yes (Death)
  Sender: FDA-Public Use
  Company Number: GXKR2009DE09609

PATIENT
  Age: 54 Year
  Sex: Female

DRUGS (8)
  1. OMEP         (OMEPRAZOLE) UNKNOWNN [Suspect]
  2. LYRICA [Suspect]
     Indication: CEREBRAL INFARCTION
     Dosage: 75 MG, QD, ORAL
     Route: 048
     Dates: start: 20081201
  3. LORAZEPAM [Suspect]
  4. ASPIRIN [Concomitant]
  5. PANTOPRAZOLE SODIUM [Concomitant]
  6. SIMVASTATIN [Concomitant]
  7. TREVILOR - SLOW RELEASE (VENLAFAXINE HYDROCHLORIDE) [Concomitant]
  8. LORAZEPAM [Concomitant]

REACTIONS (2)
  - COMPLETED SUICIDE [None]
  - INTENTIONAL OVERDOSE [None]
